FAERS Safety Report 15792269 (Version 2)
Quarter: 2019Q1

REPORT INFORMATION
  Report Type: Report from Study
  Country: US (occurrence: US)
  Receive Date: 20190107
  Receipt Date: 20190111
  Transmission Date: 20190417
  Serious: No
  Sender: FDA-Public Use
  Company Number: US-ELI_LILLY_AND_COMPANY-US201901001322

PATIENT
  Sex: Male

DRUGS (2)
  1. INSULIN, HUMAN [Suspect]
     Active Substance: INSULIN HUMAN
     Indication: PRODUCT USED FOR UNKNOWN INDICATION
     Dosage: 100 U, DAILY
     Route: 058
  2. HUMULIN 70/30 [Suspect]
     Active Substance: INSULIN HUMAN
     Indication: TYPE 2 DIABETES MELLITUS
     Dosage: 100 U, UNKNOWN
     Route: 058

REACTIONS (7)
  - Malaise [Not Recovered/Not Resolved]
  - Somnolence [Not Recovered/Not Resolved]
  - Feeling abnormal [Not Recovered/Not Resolved]
  - Blood glucose increased [Not Recovered/Not Resolved]
  - Product dose omission [Not Recovered/Not Resolved]
  - Fatigue [Not Recovered/Not Resolved]
  - Hyperhidrosis [Not Recovered/Not Resolved]
